FAERS Safety Report 25760346 (Version 1)
Quarter: 2025Q3

REPORT INFORMATION
  Report Type: Spontaneous
  Country: US (occurrence: US)
  Receive Date: 20250904
  Receipt Date: 20250904
  Transmission Date: 20251021
  Serious: Yes (Life-Threatening, Hospitalization)
  Sender: SHILPA MEDICARE
  Company Number: US-SANDOZ-SDZ2025US056248

PATIENT
  Age: 10 Year
  Sex: Female
  Weight: 40.3 kg

DRUGS (3)
  1. GEMCITABINE [Suspect]
     Active Substance: GEMCITABINE
     Indication: Germ cell cancer
  2. OXALIPLATIN [Suspect]
     Active Substance: OXALIPLATIN
     Indication: Germ cell cancer
  3. PACLITAXEL [Concomitant]
     Active Substance: PACLITAXEL
     Indication: Germ cell cancer

REACTIONS (7)
  - Pneumonia staphylococcal [Recovering/Resolving]
  - Bronchopulmonary aspergillosis [Recovering/Resolving]
  - Escherichia infection [Recovering/Resolving]
  - Urosepsis [Recovering/Resolving]
  - Venoocclusive liver disease [Recovering/Resolving]
  - Acute respiratory distress syndrome [Recovering/Resolving]
  - Thrombocytopenia [Recovering/Resolving]
